FAERS Safety Report 4798856-6 (Version None)
Quarter: 2005Q4

REPORT INFORMATION
  Report Type: 
  Country: None (occurrence: None)
  Receive Date: 20051014
  Receipt Date: 20051010
  Transmission Date: 20060501
  Serious: Yes (Other)
  Sender: FDA-Public Use
  Company Number: US-GLAXOSMITHKLINE-A0578084A

PATIENT
  Age: 40 Year
  Sex: Female

DRUGS (20)
  1. BUPROPION HCL [Suspect]
     Indication: MAJOR DEPRESSION
  2. FLONASE [Suspect]
  3. AVANDIA [Suspect]
  4. NABUMETONE [Suspect]
  5. NITROQUICK [Suspect]
  6. PRENATAL VITAMINS [Suspect]
  7. INSULIN [Suspect]
  8. SEROQUEL [Suspect]
  9. AMARYL [Suspect]
  10. HYDROCHLOROTHIAZIDE [Suspect]
  11. HYDROXYZINE HCL [Suspect]
  12. NEXIUM [Suspect]
  13. SINGULAIR [Suspect]
  14. BUSPAR [Suspect]
  15. HYDROCODONE [Suspect]
  16. METFORMIN [Suspect]
  17. CARISOPRODOL [Suspect]
  18. TRAMADOL [Suspect]
  19. BENAZEPRIL HCL [Suspect]
  20. ZOCOR [Suspect]

REACTIONS (3)
  - ABORTION INDUCED [None]
  - DRUG EXPOSURE DURING PREGNANCY [None]
  - FOETAL HEART RATE ABNORMAL [None]
